FAERS Safety Report 9233920 (Version 1)
Quarter: 2013Q2

REPORT INFORMATION
  Report Type: Spontaneous
  Country: GB (occurrence: GB)
  Receive Date: 20130416
  Receipt Date: 20130416
  Transmission Date: 20140414
  Serious: Yes (Life-Threatening)
  Sender: FDA-Public Use
  Company Number: GB-TEVA-397665ISR

PATIENT
  Age: 30 Year
  Sex: Male
  Weight: 95 kg

DRUGS (1)
  1. FINASTERIDE [Suspect]
     Indication: ALOPECIA
     Dosage: STANDARD DOSE
     Route: 048
     Dates: start: 20070401, end: 20070801

REACTIONS (4)
  - Testicular pain [Not Recovered/Not Resolved]
  - Testis cancer [Not Recovered/Not Resolved]
  - Blood testosterone decreased [Not Recovered/Not Resolved]
  - Blood cortisol decreased [Not Recovered/Not Resolved]
